FAERS Safety Report 5318165-6 (Version None)
Quarter: 2007Q2

REPORT INFORMATION
  Report Type: 
  Country: None (occurrence: None)
  Receive Date: 20070507
  Receipt Date: 20070426
  Transmission Date: 20071010
  Serious: Yes (Other)
  Sender: FDA-Public Use
  Company Number: GR-PFIZER INC-2007034287

PATIENT

DRUGS (1)
  1. GEODON [Suspect]
     Route: 048
     Dates: start: 20060101, end: 20070301

REACTIONS (2)
  - PARESIS [None]
  - PERONEAL NERVE PALSY [None]
